FAERS Safety Report 9296911 (Version 1)
Quarter: 2013Q2

REPORT INFORMATION
  Report Type: Spontaneous
  Country: AU (occurrence: AU)
  Receive Date: 20130518
  Receipt Date: 20130518
  Transmission Date: 20140414
  Serious: Yes (Hospitalization)
  Sender: FDA-Public Use
  Company Number: AU-009507513-1305AUS008304

PATIENT
  Sex: 0

DRUGS (3)
  1. NITRO-DUR [Suspect]
     Dosage: 8 ML, ONCE
     Route: 042
     Dates: start: 20130308, end: 20130308
  2. HEPARIN [Concomitant]
  3. LIDOCAINE [Concomitant]

REACTIONS (1)
  - Medication error [Unknown]
